FAERS Safety Report 4621822-8 (Version None)
Quarter: 2005Q1

REPORT INFORMATION
  Report Type: 
  Country: None (occurrence: None)
  Receive Date: 20050329
  Receipt Date: 20050318
  Transmission Date: 20050727
  Serious: Yes (Hospitalization)
  Sender: FDA-Public Use
  Company Number: 200511002FR

PATIENT
  Age: 37 Year
  Sex: Male

DRUGS (4)
  1. KETEK [Suspect]
     Route: 048
     Dates: end: 20050220
  2. DERINOX [Suspect]
     Route: 055
     Dates: end: 20050220
  3. MEDROL [Suspect]
     Route: 048
     Dates: end: 20050220
  4. POLERY                                  /FRA/ [Suspect]
     Route: 048
     Dates: end: 20050220

REACTIONS (1)
  - ATRIAL FIBRILLATION [None]
